FAERS Safety Report 20517493 (Version 2)
Quarter: 2022Q2

REPORT INFORMATION
  Report Type: Spontaneous
  Country: AT (occurrence: AT)
  Receive Date: 20220225
  Receipt Date: 20220405
  Transmission Date: 20220721
  Serious: Yes (Hospitalization, Other)
  Sender: FDA-Public Use
  Company Number: AT-JNJFOC-20220243359

PATIENT
  Age: 18 Year
  Sex: Male

DRUGS (1)
  1. RISPERDAL [Suspect]
     Active Substance: RISPERIDONE
     Indication: Schizoaffective disorder
     Route: 065

REACTIONS (6)
  - Suicide attempt [Unknown]
  - Apathy [Unknown]
  - Limb discomfort [Unknown]
  - Feeling abnormal [Unknown]
  - Learning disorder [Unknown]
  - Drug ineffective [Unknown]
